FAERS Safety Report 6258773-1 (Version None)
Quarter: 2009Q3

REPORT INFORMATION
  Report Type: 
  Country: None (occurrence: None)
  Receive Date: 20090707
  Receipt Date: 20090701
  Transmission Date: 20100115
  Serious: Yes (Other)
  Sender: FDA-Public Use
  Company Number: US-MERCK-0907USA00196

PATIENT
  Age: 63 Year
  Sex: Male

DRUGS (8)
  1. ISENTRESS [Suspect]
     Indication: HIV INFECTION
     Route: 048
  2. TRIZIVIR [Concomitant]
     Route: 065
  3. TRUVADA [Concomitant]
     Route: 065
  4. ETRAVIRINE [Concomitant]
     Route: 065
  5. T-20 [Concomitant]
     Route: 065
  6. PRAVASTATIN SODIUM [Concomitant]
     Route: 065
  7. OMEPRAZOLE [Concomitant]
     Route: 065
  8. COUMADIN [Concomitant]
     Route: 065

REACTIONS (4)
  - INSOMNIA [None]
  - MYOPATHY [None]
  - NEUTROPENIA [None]
  - PANCYTOPENIA [None]
